FAERS Safety Report 18130677 (Version 1)
Quarter: 2020Q3

REPORT INFORMATION
  Report Type: Report from Study
  Country: CA (occurrence: CA)
  Receive Date: 20200810
  Receipt Date: 20200810
  Transmission Date: 20201103
  Serious: Yes (Disabling)
  Sender: FDA-Public Use
  Company Number: NVSC2020CA081908

PATIENT
  Sex: Female

DRUGS (4)
  1. AIMOVIG [Suspect]
     Active Substance: ERENUMAB-AOOE
     Indication: MIGRAINE
     Dosage: UNK
     Route: 065
     Dates: start: 20200207
  2. QUETIAPINE. [Suspect]
     Active Substance: QUETIAPINE
     Indication: MIGRAINE
     Dosage: 25 MG, PRN
     Route: 048
     Dates: start: 20200207
  3. TYLENOL [Suspect]
     Active Substance: ACETAMINOPHEN
     Indication: PRODUCT USED FOR UNKNOWN INDICATION
     Dosage: 1000 MG, PRN
     Route: 048
  4. ALMOTRIPTAN. [Suspect]
     Active Substance: ALMOTRIPTAN
     Indication: MIGRAINE
     Dosage: 2.5 MG, PRN (REPEAT 1 IN 4 HOURS)
     Route: 048
     Dates: start: 20200207

REACTIONS (2)
  - Therapeutic response decreased [Unknown]
  - Migraine [Unknown]
